FAERS Safety Report 8457020-X (Version None)
Quarter: 2012Q2

REPORT INFORMATION
  Report Type: 
  Country: None (occurrence: None)
  Receive Date: 20120621
  Receipt Date: 20120608
  Transmission Date: 20120825
  Serious: Yes (Hospitalization)
  Sender: FDA-Public Use
  Company Number: US-MYLANLABS-2012S1011699

PATIENT
  Age: 64 Year
  Sex: Male

DRUGS (11)
  1. LISINOPRIL [Concomitant]
     Dosage: 20 MG/DAY
     Route: 065
  2. NIACIN [Concomitant]
     Dosage: 500 MG/DAY
     Route: 065
  3. VITAMIN B COMPLEX CAP [Concomitant]
     Route: 065
  4. ESOMEPRAZOLE [Concomitant]
     Dosage: 40 MG/DAY
     Route: 065
  5. ASPIRIN [Concomitant]
     Dosage: 325 MG/DAY
     Route: 065
  6. LEVOTHYROXINE SODIUM [Concomitant]
     Dosage: 175 MICROG/DAY
     Route: 065
  7. CLOPIDOGREL [Suspect]
     Dosage: 75 MG/DAY
     Route: 065
  8. WARFARIN SODIUM [Concomitant]
     Dosage: 5 MG/DAY
     Route: 065
  9. NITROGLYCERIN [Concomitant]
     Indication: CHEST PAIN
     Dosage: 0.4MG AS NEEDED
     Route: 065
  10. AMIODARONE HYDROCHLORIDE [Concomitant]
     Indication: ATRIAL FIBRILLATION
     Dosage: 400 MG/DAY
     Route: 065
  11. ROSUVASTATIN [Concomitant]
     Dosage: 20 MG/DAY
     Route: 065

REACTIONS (6)
  - ARTHRITIS [None]
  - CHILLS [None]
  - ARTHRALGIA [None]
  - LEUKOCYTOSIS [None]
  - PYREXIA [None]
  - CHEST DISCOMFORT [None]
